FAERS Safety Report 17702416 (Version 2)
Quarter: 2020Q2

REPORT INFORMATION
  Report Type: Spontaneous
  Country: US (occurrence: US)
  Receive Date: 20200424
  Receipt Date: 20200624
  Transmission Date: 20200714
  Serious: No
  Sender: FDA-Public Use
  Company Number: US-ELI_LILLY_AND_COMPANY-US202004008521

PATIENT
  Sex: Female
  Weight: 99.77 kg

DRUGS (3)
  1. HUMULIN N [Suspect]
     Active Substance: INSULIN HUMAN
     Indication: GESTATIONAL DIABETES
     Dosage: 22 U, UNKNOWN
     Route: 058
     Dates: start: 202003
  2. HUMULIN N [Suspect]
     Active Substance: INSULIN HUMAN
     Dosage: 28 U, DAILY
     Route: 058
     Dates: end: 20200605
  3. HUMULIN N [Suspect]
     Active Substance: INSULIN HUMAN
     Dosage: 16 U, DAILY
     Route: 058

REACTIONS (1)
  - Maternal exposure during pregnancy [Not Recovered/Not Resolved]
